FAERS Safety Report 11846212 (Version 1)
Quarter: 2015Q4

REPORT INFORMATION
  Report Type: Spontaneous
  Country: IT (occurrence: IT)
  Receive Date: 20151217
  Receipt Date: 20151217
  Transmission Date: 20160305
  Serious: Yes (Hospitalization)
  Sender: FDA-Public Use
  Company Number: IT-B.I. PHARMACEUTICALS,INC./RIDGEFIELD-2015-BI-69656IT

PATIENT
  Age: 58 Year
  Sex: Male

DRUGS (3)
  1. MADOPAR [Suspect]
     Active Substance: BENSERAZIDE HYDROCHLORIDE\LEVODOPA
     Indication: PARKINSON^S DISEASE
     Dosage: FORMULATION:DIVISIBLE TABLETS; STRENGTH:200 MG + 50 MG
     Route: 048
     Dates: start: 20121201, end: 20151203
  2. MOVICOL [Concomitant]
     Active Substance: POLYETHYLENE GLYCOL 3350\POTASSIUM CHLORIDE\SODIUM BICARBONATE\SODIUM CHLORIDE
     Indication: PRODUCT USED FOR UNKNOWN INDICATION
     Route: 065
  3. MIRAPEXIN [Suspect]
     Active Substance: PRAMIPEXOLE
     Indication: PARKINSON^S DISEASE
     Dosage: FORMULATION: PROLONGED RELEASE TABLET; STRENGHT:0.52MG
     Route: 048
     Dates: start: 20121201, end: 20151203

REACTIONS (5)
  - Somnolence [Not Recovered/Not Resolved]
  - Mood altered [Not Recovered/Not Resolved]
  - Compulsive hoarding [Not Recovered/Not Resolved]
  - Decreased interest [Not Recovered/Not Resolved]
  - Disturbance in attention [Not Recovered/Not Resolved]

NARRATIVE: CASE EVENT DATE: 20130201
